FAERS Safety Report 4672646-7 (Version None)
Quarter: 2005Q2

REPORT INFORMATION
  Report Type: 
  Country: None (occurrence: None)
  Receive Date: 20050524
  Receipt Date: 20050503
  Transmission Date: 20051028
  Serious: Yes (Hospitalization)
  Sender: FDA-Public Use
  Company Number: ES-MERCK-0505ESP00003

PATIENT
  Age: 3 Year
  Sex: Female

DRUGS (2)
  1. SINGULAIR [Suspect]
     Indication: ASTHMA
     Route: 048
     Dates: start: 20050422, end: 20050427
  2. BUDESONIDE [Concomitant]
     Indication: ASTHMA
     Route: 065

REACTIONS (1)
  - ERYTHEMA MULTIFORME [None]
